FAERS Safety Report 16689631 (Version 6)
Quarter: 2020Q3

REPORT INFORMATION
  Report Type: Report from Study
  Country: US (occurrence: US)
  Receive Date: 20190809
  Receipt Date: 20200724
  Transmission Date: 20201102
  Serious: Yes (Hospitalization, Disabling)
  Sender: FDA-Public Use
  Company Number: US-ACTELION-A-NJ2018-174294

PATIENT
  Age: 68 Year
  Sex: Female
  Weight: 66.67 kg

DRUGS (15)
  1. VELETRI [Suspect]
     Active Substance: EPOPROSTENOL
     Dosage: 28 NG/KG, PER MIN
     Route: 042
  2. OXYGEN. [Concomitant]
     Active Substance: OXYGEN
  3. REVATIO [Concomitant]
     Active Substance: SILDENAFIL CITRATE
  4. WARFARIN [Concomitant]
     Active Substance: WARFARIN
  5. VELETRI [Suspect]
     Active Substance: EPOPROSTENOL
     Dosage: 35 NG/KG, PER MIN
     Route: 042
  6. VELETRI [Suspect]
     Active Substance: EPOPROSTENOL
     Dosage: 20 NG/KG, PER MIN
     Route: 042
  7. VELETRI [Suspect]
     Active Substance: EPOPROSTENOL
     Indication: PULMONARY ARTERIAL HYPERTENSION
     Dosage: 31 NG/KG, PER MIN
     Route: 042
  8. VELETRI [Suspect]
     Active Substance: EPOPROSTENOL
     Dosage: 49.5 NG/KG, PER MIN
     Route: 042
  9. TRACLEER [Concomitant]
     Active Substance: BOSENTAN
  10. VELETRI [Suspect]
     Active Substance: EPOPROSTENOL
     Dosage: 16.5 NG/KG, PER MIN
     Route: 042
  11. VELETRI [Suspect]
     Active Substance: EPOPROSTENOL
     Dosage: 24 NG/KG, PER MIN
     Route: 042
  12. AMBRISENTAN [Suspect]
     Active Substance: AMBRISENTAN
     Indication: PRODUCT USED FOR UNKNOWN INDICATION
     Dosage: UNK
     Route: 048
  13. VELETRI [Suspect]
     Active Substance: EPOPROSTENOL
     Dosage: 13 NG/KG, PER MIN
     Route: 042
  14. VELETRI [Suspect]
     Active Substance: EPOPROSTENOL
     Dosage: 7 NG/KG, PER MIN
     Route: 042
  15. VELETRI [Suspect]
     Active Substance: EPOPROSTENOL
     Dosage: 25 NG/KG, PER MIN
     Route: 042

REACTIONS (25)
  - Pain [Unknown]
  - Fluid retention [Unknown]
  - Flushing [Unknown]
  - Myalgia [Unknown]
  - Pain in extremity [Unknown]
  - Headache [Unknown]
  - Constipation [Unknown]
  - Cardiac disorder [Unknown]
  - Sciatica [Unknown]
  - Presyncope [Unknown]
  - Condition aggravated [Unknown]
  - Pruritus [Unknown]
  - Heart rate increased [Recovered/Resolved]
  - Product administration interrupted [Recovered/Resolved]
  - Right ventricular failure [Recovered/Resolved]
  - Pulmonary arterial hypertension [Recovered/Resolved]
  - Dyspnoea exertional [Recovered/Resolved]
  - Blood iron decreased [Unknown]
  - Dizziness [Unknown]
  - Pain in jaw [Unknown]
  - Arthralgia [Unknown]
  - Nausea [Unknown]
  - Platelet count decreased [Unknown]
  - Malaise [Unknown]
  - Unevaluable event [Unknown]

NARRATIVE: CASE EVENT DATE: 20191218
